FAERS Safety Report 19727203 (Version 2)
Quarter: 2021Q3

REPORT INFORMATION
  Report Type: Spontaneous
  Country: US (occurrence: US)
  Receive Date: 20210820
  Receipt Date: 20210830
  Transmission Date: 20211014
  Serious: Yes (Death, Other)
  Sender: FDA-Public Use
  Company Number: US-GLAXOSMITHKLINE-US2021GSK174593

PATIENT
  Sex: Female

DRUGS (2)
  1. LAMICTAL [Suspect]
     Active Substance: LAMOTRIGINE
     Indication: BIPOLAR DISORDER
  2. LAMICTAL [Suspect]
     Active Substance: LAMOTRIGINE
     Indication: AFFECTIVE DISORDER
     Dosage: UNK
     Route: 065
     Dates: start: 201712

REACTIONS (17)
  - Stevens-Johnson syndrome [Unknown]
  - Mucosal inflammation [Unknown]
  - Splenomegaly [Unknown]
  - Chapped lips [Unknown]
  - Toxic epidermal necrolysis [Unknown]
  - Conjunctivitis [Unknown]
  - Rash [Unknown]
  - Stomatitis [Unknown]
  - Condition aggravated [Unknown]
  - Haemophagocytic lymphohistiocytosis [Unknown]
  - Oropharyngeal pain [Unknown]
  - Swelling face [Unknown]
  - Death [Fatal]
  - Lip blister [Unknown]
  - Dysphagia [Unknown]
  - Dysuria [Unknown]
  - Pyrexia [Unknown]

NARRATIVE: CASE EVENT DATE: 201807
